FAERS Safety Report 15003878 (Version 1)
Quarter: 2018Q2

REPORT INFORMATION
  Report Type: Spontaneous
  Country: DE (occurrence: DE)
  Receive Date: 20180613
  Receipt Date: 20180613
  Transmission Date: 20180711
  Serious: Yes (Hospitalization)
  Sender: FDA-Public Use
  Company Number: DE-TEVA-2018-DE-905216

PATIENT
  Age: 62 Year
  Sex: Male
  Weight: 60 kg

DRUGS (12)
  1. CARVEDILOL. [Concomitant]
     Active Substance: CARVEDILOL
     Dosage: 2-0-2-0,
     Route: 048
  2. CLOPIDOGREL [Suspect]
     Active Substance: CLOPIDOGREL BISULFATE
     Dosage: 1-0-0-0,
     Route: 048
  3. OMEPRAZOL [Concomitant]
     Active Substance: OMEPRAZOLE
     Dosage: 1-0-0-0,
     Route: 048
  4. INDACATEROL/GLYCOPYRRONIUMBROMID [Concomitant]
     Dosage: 85|43 ?G, 1-0-0-0, DOSIERAEROSOL
     Route: 055
  5. ACETYLSALICYLSAEURE [Suspect]
     Active Substance: ASPIRIN
     Dosage: 1-0-0-0,
     Route: 048
  6. RAMIPRIL. [Concomitant]
     Active Substance: RAMIPRIL
     Dosage: 0-0-1-0,
     Route: 048
  7. FENOTEROL W/IPRATROPIUM [Concomitant]
     Active Substance: FENOTEROL
     Dosage: 0.05|0.02 MG, NEED, DOSING AEROSOL
     Route: 055
  8. MESALAZIN [Concomitant]
     Active Substance: MESALAMINE
     Dosage: 2-2-2-0,
     Route: 048
  9. ATORVASTATIN [Concomitant]
     Active Substance: ATORVASTATIN
     Dosage: 0-0-1-0,
     Route: 048
  10. MIRTAZAPIN [Concomitant]
     Active Substance: MIRTAZAPINE
     Dosage: 0-0-0-1,
     Route: 048
  11. TAMSULOSIN [Concomitant]
     Active Substance: TAMSULOSIN
     Dosage: 1-0-0-0,
     Route: 048
  12. ESCITALOPRAM [Concomitant]
     Active Substance: ESCITALOPRAM OXALATE
     Dosage: , 1-0-0-0,
     Route: 048

REACTIONS (6)
  - Haematochezia [Unknown]
  - Anaemia [Unknown]
  - Angina pectoris [Unknown]
  - Dizziness [Unknown]
  - Hypotension [Unknown]
  - Gastrointestinal haemorrhage [Unknown]
